FAERS Safety Report 5238693-1 (Version None)
Quarter: 2007Q1

REPORT INFORMATION
  Report Type: 
  Country: None (occurrence: None)
  Receive Date: 20070215
  Receipt Date: 20070206
  Transmission Date: 20070707
  Serious: Yes (Hospitalization)
  Sender: FDA-Public Use
  Company Number: US-SHR-US-2007-004258

PATIENT
  Age: 58 Year
  Sex: Female

DRUGS (2)
  1. BETASERON [Suspect]
     Route: 058
     Dates: start: 20011023, end: 20040802
  2. BETASERON [Suspect]
     Dosage: 8 MIU, EVERY 2D
     Route: 058
     Dates: start: 20041025, end: 20061002

REACTIONS (2)
  - MYOSITIS [None]
  - OSTEOMYELITIS [None]
